FAERS Safety Report 22397117 (Version 1)
Quarter: 2023Q2

REPORT INFORMATION
  Report Type: Spontaneous
  Country: CA (occurrence: CA)
  Receive Date: 20230602
  Receipt Date: 20230602
  Transmission Date: 20230721
  Serious: Yes (Death)
  Sender: FDA-Public Use
  Company Number: CA-CHEPLA-2023006372

PATIENT
  Age: 48 Year
  Sex: Female

DRUGS (5)
  1. CLONAZEPAM [Suspect]
     Active Substance: CLONAZEPAM
  2. GABAPENTIN [Suspect]
     Active Substance: GABAPENTIN
  3. MIRTAZAPINE [Suspect]
     Active Substance: MIRTAZAPINE
  4. OLANZAPINE [Suspect]
     Active Substance: OLANZAPINE
  5. VENLAFAXINE HYDROCHLORIDE [Suspect]
     Active Substance: VENLAFAXINE HYDROCHLORIDE

REACTIONS (3)
  - Accidental death [Fatal]
  - Arrhythmia [Fatal]
  - Drug interaction [Fatal]
